FAERS Safety Report 6161518-7 (Version None)
Quarter: 2009Q2

REPORT INFORMATION
  Report Type: 
  Country: None (occurrence: None)
  Receive Date: 20090421
  Receipt Date: 20090413
  Transmission Date: 20091009
  Serious: Yes (Other)
  Sender: FDA-Public Use
  Company Number: US-ELI_LILLY_AND_COMPANY-US200611004760

PATIENT
  Sex: Female
  Weight: 54.421 kg

DRUGS (3)
  1. EVISTA [Suspect]
     Dosage: UNK, UNK
     Dates: start: 20041101, end: 20050101
  2. FORTEO [Suspect]
     Indication: OSTEOPOROSIS
     Dosage: UNK, UNK
     Dates: start: 20061101, end: 20090201
  3. FORTEO [Suspect]
     Dosage: UNK, UNK

REACTIONS (7)
  - ABDOMINAL DISTENSION [None]
  - ABDOMINAL PAIN LOWER [None]
  - BREAST SWELLING [None]
  - BREAST TENDERNESS [None]
  - COLON CANCER [None]
  - COLONIC POLYP [None]
  - METASTATIC CARCINOID TUMOUR [None]
